FAERS Safety Report 25457528 (Version 2)
Quarter: 2025Q2

REPORT INFORMATION
  Report Type: Spontaneous
  Country: IN (occurrence: IN)
  Receive Date: 20250619
  Receipt Date: 20250630
  Transmission Date: 20250717
  Serious: Yes (Life-Threatening, Hospitalization, Other)
  Sender: PFIZER
  Company Number: IN-PFIZER INC-PV202500072960

PATIENT
  Age: 29 Year
  Sex: Female

DRUGS (2)
  1. ADRIAMYCIN [Suspect]
     Active Substance: DOXORUBICIN HYDROCHLORIDE
     Indication: Uterine leiomyosarcoma
     Route: 042
  2. TRABECTEDIN [Suspect]
     Active Substance: TRABECTEDIN
     Indication: Uterine leiomyosarcoma

REACTIONS (5)
  - Ejection fraction decreased [Recovered/Resolved]
  - Respiratory failure [Recovered/Resolved]
  - Cardiac failure [Recovered/Resolved]
  - Sepsis [Recovered/Resolved]
  - Tumour lysis syndrome [Recovered/Resolved]
